FAERS Safety Report 13297015 (Version 5)
Quarter: 2017Q2

REPORT INFORMATION
  Report Type: Spontaneous
  Country: JP (occurrence: JP)
  Receive Date: 20170306
  Receipt Date: 20170427
  Transmission Date: 20170830
  Serious: Yes (Hospitalization, Other)
  Sender: FDA-Public Use
  Company Number: JP-ORION CORPORATION ORION PHARMA-ENT 2017-0035

PATIENT
  Age: 85 Year
  Sex: Male
  Weight: 52 kg

DRUGS (10)
  1. COMTAN [Suspect]
     Active Substance: ENTACAPONE
     Indication: PARKINSON^S DISEASE
     Route: 048
     Dates: start: 20141208, end: 20170228
  2. MOSAPRIDE [Concomitant]
     Active Substance: MOSAPRIDE
     Route: 065
     Dates: start: 20141208
  3. DOPACOL [Concomitant]
     Active Substance: CARBIDOPA\LEVODOPA
     Route: 065
     Dates: start: 20141208
  4. DROXIDOPA [Concomitant]
     Active Substance: DROXIDOPA
     Route: 065
     Dates: start: 20141208
  5. COMTAN [Suspect]
     Active Substance: ENTACAPONE
     Route: 048
     Dates: start: 20170301, end: 20170405
  6. BI SIFROL [Suspect]
     Active Substance: PRAMIPEXOLE
     Route: 048
     Dates: start: 20170301, end: 20170405
  7. NEUPRO [Suspect]
     Active Substance: ROTIGOTINE
     Indication: PARKINSON^S DISEASE
     Route: 062
     Dates: start: 20141208
  8. FP-OD [Concomitant]
     Active Substance: SELEGILINE HYDROCHLORIDE
     Route: 065
     Dates: start: 20141208
  9. FERROMIA [Concomitant]
     Active Substance: FERROUS CITRATE
     Route: 065
     Dates: start: 20141208
  10. BI SIFROL [Suspect]
     Active Substance: PRAMIPEXOLE
     Indication: PARKINSON^S DISEASE
     Route: 048
     Dates: start: 20141208, end: 20170228

REACTIONS (4)
  - Rhabdomyolysis [Recovered/Resolved]
  - Decreased appetite [Recovered/Resolved]
  - Pneumonia [Recovered/Resolved]
  - Neuroleptic malignant syndrome [Recovered/Resolved]

NARRATIVE: CASE EVENT DATE: 20170301
